FAERS Safety Report 5108548-1 (Version None)
Quarter: 2006Q3

REPORT INFORMATION
  Report Type: 
  Country: None (occurrence: None)
  Receive Date: 20060731
  Receipt Date: 20060508
  Transmission Date: 20061208
  Serious: No
  Sender: FDA-Public Use
  Company Number: 2006PV013549

PATIENT
  Age: 69 Year
  Sex: Female
  Weight: 138.8007 kg

DRUGS (6)
  1. BYETTA [Suspect]
     Indication: DIABETES MELLITUS NON-INSULIN-DEPENDENT
     Dosage: 5 MCG; BID; SC
     Route: 058
     Dates: start: 20060301
  2. HUMULIN 70/30 [Concomitant]
  3. TOPROLOL XL [Concomitant]
  4. DIOVAN [Concomitant]
  5. NORVASC [Concomitant]
  6. LIPITOR [Concomitant]

REACTIONS (5)
  - CONDITION AGGRAVATED [None]
  - HEART RATE INCREASED [None]
  - JOINT SWELLING [None]
  - OEDEMA PERIPHERAL [None]
  - TREMOR [None]
